FAERS Safety Report 4825111-8 (Version None)
Quarter: 2005Q4

REPORT INFORMATION
  Report Type: 
  Country: None (occurrence: None)
  Receive Date: 20051109
  Receipt Date: 20051109
  Transmission Date: 20060501
  Serious: Yes (Hospitalization)
  Sender: FDA-Public Use
  Company Number: None

PATIENT
  Age: 56 Year
  Sex: Male
  Weight: 66.6788 kg

DRUGS (1)
  1. GASTROGRAFIN [Suspect]
     Indication: DIAGNOSTIC PROCEDURE
     Dosage: 45 ML   ONE TIME   PO
     Route: 048
     Dates: start: 20051005, end: 20051005

REACTIONS (5)
  - CONTRAST MEDIA REACTION [None]
  - INJURY [None]
  - RENAL FAILURE ACUTE [None]
  - RENAL TUBULAR NECROSIS [None]
  - SEPSIS [None]
